FAERS Safety Report 6459974-X (Version None)
Quarter: 2009Q4

REPORT INFORMATION
  Report Type: 
  Country: None (occurrence: None)
  Receive Date: 20091129
  Receipt Date: 20091117
  Transmission Date: 20100525
  Serious: Yes (Other)
  Sender: FDA-Public Use
  Company Number: PHEH2009US16213

PATIENT
  Sex: Female
  Weight: 76.644 kg

DRUGS (1)
  1. RECLAST [Suspect]
     Dosage: 5 MG/100 ML, YEARLY
     Dates: start: 20091113

REACTIONS (2)
  - DYSPNOEA [None]
  - SWELLING FACE [None]
